FAERS Safety Report 18332879 (Version 1)
Quarter: 2020Q3

REPORT INFORMATION
  Report Type: Other
  Country: US (occurrence: US)
  Receive Date: 20200930
  Receipt Date: 20200930
  Transmission Date: 20201103
  Serious: Yes (Other)
  Sender: FDA-Public Use
  Company Number: US-ROCHE-2687067

PATIENT
  Sex: Male

DRUGS (2)
  1. OCREVUS [Suspect]
     Active Substance: OCRELIZUMAB
     Indication: RELAPSING-REMITTING MULTIPLE SCLEROSIS
     Route: 065
     Dates: start: 20190925, end: 20200220
  2. OCREVUS [Suspect]
     Active Substance: OCRELIZUMAB
     Dosage: ON DAY 1 AND 15
     Route: 065
     Dates: start: 20190822

REACTIONS (1)
  - Herpes zoster [Recovered/Resolved]
